FAERS Safety Report 16404932 (Version 1)
Quarter: 2019Q2

REPORT INFORMATION
  Report Type: Spontaneous
  Country: GB (occurrence: GB)
  Receive Date: 20190607
  Receipt Date: 20190607
  Transmission Date: 20190711
  Serious: Yes (Other)
  Sender: FDA-Public Use
  Company Number: GB-BAUSCH-BL-2019-015848

PATIENT
  Age: 57 Year
  Sex: Female
  Weight: 72 kg

DRUGS (1)
  1. MINIMS PROXYMETACAINE [Suspect]
     Active Substance: PROPARACAINE HYDROCHLORIDE
     Indication: DACRYOSTENOSIS ACQUIRED
     Dosage: ON COTTON BUD FOR FLUSHING OF TEAR DUCTS, BUD HELD ON EYE
     Route: 050
     Dates: start: 20190226, end: 20190226

REACTIONS (5)
  - Keratopathy [Unknown]
  - Ocular hyperaemia [Not Recovered/Not Resolved]
  - Blister [Not Recovered/Not Resolved]
  - Vision blurred [Not Recovered/Not Resolved]
  - Photophobia [Not Recovered/Not Resolved]

NARRATIVE: CASE EVENT DATE: 20190227
